FAERS Safety Report 9319514 (Version 1)
Quarter: 2013Q2

REPORT INFORMATION
  Report Type: Spontaneous
  Country: GB (occurrence: None)
  Receive Date: 20130528
  Receipt Date: 20130528
  Transmission Date: 20140414
  Serious: Yes (Disabling)
  Sender: FDA-Public Use
  Company Number: 1719035

PATIENT
  Age: 17 Year
  Sex: Male

DRUGS (7)
  1. CYTARABINE [Suspect]
     Indication: ACUTE LYMPHOCYTIC LEUKAEMIA
     Dosage: 75 MG/M^2 (UNKNOWN), INTRAVENOUS (NOT OTHERWISE SPECIFIED)
     Route: 042
  2. METHOTREXATE [Suspect]
     Indication: ACUTE LYMPHOCYTIC LEUKAEMIA
     Route: 037
  3. CYCLOPHOSPHAMIDE [Suspect]
     Indication: ACUTE LYMPHOCYTIC LEUKAEMIA
     Dosage: 1000 MG/M^2 (KNOWN) INTRAVENOUS (NOT OTHERWISE SPECIFIED)
     Route: 042
  4. VINCRISTINE [Concomitant]
  5. DEXAMETAHSONE [Concomitant]
  6. ASPARAGINASE [Concomitant]
  7. DAUNORUBICIN [Concomitant]

REACTIONS (6)
  - Monoparesis [None]
  - Confusional state [None]
  - Aphasia [None]
  - Memory impairment [None]
  - Ataxia [None]
  - Altered state of consciousness [None]
